FAERS Safety Report 19770993 (Version 1)
Quarter: 2021Q3

REPORT INFORMATION
  Report Type: Spontaneous
  Country: US (occurrence: US)
  Receive Date: 20210830
  Receipt Date: 20210830
  Transmission Date: 20211014
  Serious: No
  Sender: FDA-Public Use
  Company Number: None

PATIENT
  Age: 72 Year
  Sex: Male

DRUGS (1)
  1. CETUXIMAB(CETUXIMAB 2MG/ML INJ, 100ML) [Suspect]
     Active Substance: CETUXIMAB
     Route: 028
     Dates: start: 20210420, end: 20210420

REACTIONS (7)
  - Dyspnoea [None]
  - Pruritus [None]
  - Cough [None]
  - Urticaria [None]
  - Hypotension [None]
  - Oxygen saturation decreased [None]
  - Wheezing [None]

NARRATIVE: CASE EVENT DATE: 20210420
